FAERS Safety Report 6903856-3 (Version None)
Quarter: 2010Q3

REPORT INFORMATION
  Report Type: 
  Country: None (occurrence: None)
  Receive Date: 20100804
  Receipt Date: 20090109
  Transmission Date: 20110219
  Serious: No
  Sender: FDA-Public Use
  Company Number: US-PFIZER INC-2008048456

PATIENT
  Sex: Female

DRUGS (17)
  1. LYRICA [Suspect]
     Dosage: 25 MG, 1X/DAY
     Dates: start: 20080529, end: 20080531
  2. REFRESH TEARS [Concomitant]
  3. CYCLOSPORINE [Concomitant]
  4. MULTI-VITAMINS [Concomitant]
  5. CALTRATE [Concomitant]
  6. CALCIUM [Concomitant]
  7. CARDIZEM [Concomitant]
  8. ENALAPRIL [Concomitant]
  9. HYDROCHLOROTHIAZIDE [Concomitant]
  10. LEVOTHYROXINE [Concomitant]
  11. ACETYLSALICYLIC ACID SRT [Concomitant]
  12. CRESTOR [Concomitant]
  13. ANASTROZOLE [Concomitant]
  14. TRAMADOL HYDROCHLORIDE [Concomitant]
  15. AMBIEN [Concomitant]
  16. XANAX [Concomitant]
  17. ALL OTHER THERAPEUTIC PRODUCTS [Concomitant]

REACTIONS (9)
  - DIZZINESS [None]
  - DRUG INEFFECTIVE [None]
  - DRY EYE [None]
  - DRY MOUTH [None]
  - DYSPNOEA [None]
  - IMPAIRED DRIVING ABILITY [None]
  - MYALGIA [None]
  - SLEEP DISORDER [None]
  - VISION BLURRED [None]
